FAERS Safety Report 21719890 (Version 3)
Quarter: 2023Q2

REPORT INFORMATION
  Report Type: Report from Study
  Country: SE (occurrence: SE)
  Receive Date: 20221213
  Receipt Date: 20230414
  Transmission Date: 20230721
  Serious: Yes (Other)
  Sender: FDA-Public Use
  Company Number: SE-TAKEDA-2022TUS095251

PATIENT
  Sex: Male

DRUGS (23)
  1. TEDUGLUTIDE [Suspect]
     Active Substance: TEDUGLUTIDE
     Indication: Short-bowel syndrome
     Dosage: 2.8 MILLIGRAM, QD
     Route: 042
     Dates: start: 20200312
  2. TEDUGLUTIDE [Suspect]
     Active Substance: TEDUGLUTIDE
     Indication: Short-bowel syndrome
     Dosage: 2.8 MILLIGRAM, QD
     Route: 042
     Dates: start: 20200312
  3. TEDUGLUTIDE [Suspect]
     Active Substance: TEDUGLUTIDE
     Indication: Short-bowel syndrome
     Dosage: 2.8 MILLIGRAM, QD
     Route: 042
     Dates: start: 20200312
  4. TEDUGLUTIDE [Suspect]
     Active Substance: TEDUGLUTIDE
     Indication: Short-bowel syndrome
     Dosage: 2.8 MILLIGRAM, QD
     Route: 042
     Dates: start: 20200312
  5. SOLVEZINK [Concomitant]
     Indication: Zinc deficiency
     Dosage: 0.50 DOSAGE FORM, QD
     Route: 048
     Dates: start: 20210618
  6. BEVIPLEX FORTE [Concomitant]
     Indication: Crohn^s disease
     Dosage: 1 DOSAGE FORM, BID
     Route: 048
     Dates: start: 20200108
  7. BEVIPLEX FORTE [Concomitant]
     Indication: Short-bowel syndrome
  8. BEVIPLEX FORTE [Concomitant]
     Indication: Vitamin B complex deficiency
  9. BUDESONIDE [Concomitant]
     Active Substance: BUDESONIDE
     Indication: Dysphagia
     Dosage: 1 MILLIGRAM, BID
     Route: 048
     Dates: start: 20220615, end: 20220728
  10. BUDESONIDE [Concomitant]
     Active Substance: BUDESONIDE
     Dosage: 1 MILLIGRAM, BID
     Route: 048
     Dates: start: 20211201, end: 20220112
  11. ESOMEPRAZOLE [Concomitant]
     Active Substance: ESOMEPRAZOLE
     Indication: Oesophagitis
     Dosage: 40 MILLIGRAM, BID
  12. LOPERAMIDE [Concomitant]
     Active Substance: LOPERAMIDE
     Indication: Diarrhoea
     Dosage: 2 MILLIGRAM
  13. DETREMIN [Concomitant]
     Indication: Vitamin D deficiency
     Dosage: UNK UNK, QD
  14. CALCIUM CARBONATE\CHOLECALCIFEROL [Concomitant]
     Active Substance: CALCIUM CARBONATE\CHOLECALCIFEROL
     Indication: Calcium deficiency
     Dosage: 1 DOSAGE FORM, QD
  15. CALCIUM CARBONATE\CHOLECALCIFEROL [Concomitant]
     Active Substance: CALCIUM CARBONATE\CHOLECALCIFEROL
     Indication: Vitamin D deficiency
  16. RETINOL [Concomitant]
     Active Substance: RETINOL
     Indication: Vitamin A deficiency
     Dosage: 1 DOSAGE FORM, QD
  17. INFLECTRA [Concomitant]
     Active Substance: INFLIXIMAB-DYYB
     Indication: Crohn^s disease
     Dosage: 300 MILLIGRAM, Q6WEEKS
     Route: 042
  18. PROPIOMAZINE [Concomitant]
     Active Substance: PROPIOMAZINE
     Indication: Sleep disorder
     Dosage: 25 MILLIGRAM
  19. HYDROXOCOBALAMIN ALTERNOVA [Concomitant]
     Indication: Vitamin B12 deficiency
  20. THIAMINE [Concomitant]
     Active Substance: THIAMINE
     Indication: Optic neuropathy
     Dosage: 200 MILLIGRAM
     Route: 042
     Dates: start: 20230330, end: 20230330
  21. ALBUMIN HUMAN [Concomitant]
     Active Substance: ALBUMIN HUMAN
     Indication: Squamous cell carcinoma of skin
     Dosage: 40 GRAM
     Route: 042
     Dates: start: 20230213, end: 20230213
  22. ALBUMIN HUMAN [Concomitant]
     Active Substance: ALBUMIN HUMAN
     Dosage: 40 GRAM
     Route: 042
     Dates: start: 20230227, end: 20230227
  23. PANTOPRAZOLE SODIUM [Concomitant]
     Active Substance: PANTOPRAZOLE SODIUM
     Indication: Gastritis
     Dosage: 20 MILLIGRAM, BID
     Route: 048
     Dates: start: 20230119

REACTIONS (2)
  - Squamous cell carcinoma of skin [Recovered/Resolved]
  - COVID-19 [Recovered/Resolved]

NARRATIVE: CASE EVENT DATE: 20220101
